FAERS Safety Report 21318159 (Version 1)
Quarter: 2022Q3

REPORT INFORMATION
  Report Type: Spontaneous
  Country: US (occurrence: US)
  Receive Date: 20220911
  Receipt Date: 20220911
  Transmission Date: 20221027
  Serious: No
  Sender: FDA-Public Use
  Company Number: US-SA-SAC20220829002092

PATIENT
  Age: 64 Year
  Sex: Male
  Weight: 82.993 kg

DRUGS (6)
  1. DUPIXENT [Suspect]
     Active Substance: DUPILUMAB
     Indication: Dermatitis atopic
     Dosage: 300 MG, QOW
     Route: 058
     Dates: start: 202012
  2. XANAX [Concomitant]
     Active Substance: ALPRAZOLAM
  3. FAMOTIDINE [Concomitant]
     Active Substance: FAMOTIDINE
  4. SIMVASTATIN [Concomitant]
     Active Substance: SIMVASTATIN
  5. AMLODIPINE BESYLATE [Concomitant]
     Active Substance: AMLODIPINE BESYLATE
  6. GLYXAMBI [Concomitant]
     Active Substance: EMPAGLIFLOZIN\LINAGLIPTIN
     Dosage: GLYXAMBI 10 MG-5 MG TABLET

REACTIONS (2)
  - Acne [Recovered/Resolved]
  - Skin weeping [Recovered/Resolved]

NARRATIVE: CASE EVENT DATE: 20220701
